FAERS Safety Report 4846403-2 (Version None)
Quarter: 2005Q4

REPORT INFORMATION
  Report Type: 
  Country: None (occurrence: None)
  Receive Date: 20051201
  Receipt Date: 20051118
  Transmission Date: 20060501
  Serious: Yes (Death)
  Sender: FDA-Public Use
  Company Number: S05-UKI-05315-01

PATIENT
  Age: 45 Year
  Sex: Female

DRUGS (9)
  1. CITALOPRAM HYDROBROMIDE [Suspect]
     Dosage: 20 MG QD
     Dates: start: 20041221, end: 20040107
  2. NOVORAPID (INSULIN ASPART) [Concomitant]
  3. LANTUS [Concomitant]
  4. DIAZEPAM [Concomitant]
  5. ETHANOL [Concomitant]
  6. ZOPICLONE [Concomitant]
  7. PYRIDOXINE HCL [Concomitant]
  8. LIOTHYRONINE [Concomitant]
  9. THYROXINE (LEVOTHYROXINE SODIUM) (LEVOTHYROXINE SODIUM) [Concomitant]

REACTIONS (3)
  - COMPLETED SUICIDE [None]
  - DEPRESSION [None]
  - MULTIPLE DRUG OVERDOSE INTENTIONAL [None]
